FAERS Safety Report 6312745-7 (Version None)
Quarter: 2009Q3

REPORT INFORMATION
  Report Type: 
  Country: None (occurrence: None)
  Receive Date: 20090818
  Receipt Date: 20090812
  Transmission Date: 20100115
  Serious: Yes (Death)
  Sender: FDA-Public Use
  Company Number: JP-BRISTOL-MYERS SQUIBB COMPANY-14741342

PATIENT
  Age: 60 Year
  Sex: Male

DRUGS (3)
  1. REYATAZ [Suspect]
     Indication: HIV INFECTION
     Route: 048
     Dates: start: 20050802, end: 20090109
  2. RITONAVIR [Suspect]
     Indication: HIV INFECTION
     Dates: start: 20050802, end: 20090109
  3. EMTRICITABINE [Suspect]
     Indication: HIV INFECTION
     Dosage: 1 DF=1 TAB
     Dates: start: 20050802, end: 20090109

REACTIONS (1)
  - ANAL CANCER [None]
